FAERS Safety Report 20210273 (Version 1)
Quarter: 2021Q4

REPORT INFORMATION
  Report Type: Spontaneous
  Country: VE (occurrence: VE)
  Receive Date: 20211221
  Receipt Date: 20211221
  Transmission Date: 20220304
  Serious: Yes (Other)
  Sender: FDA-Public Use
  Company Number: VE-NOVARTISPH-NVSC2021VE290658

PATIENT
  Sex: Female

DRUGS (1)
  1. GLIVEC [Suspect]
     Active Substance: IMATINIB MESYLATE
     Indication: Product used for unknown indication
     Dosage: 400 MG (4X 100 MG)
     Route: 065

REACTIONS (3)
  - Liposarcoma [Unknown]
  - Second primary malignancy [Unknown]
  - Neoplasm [Unknown]
